FAERS Safety Report 4970926-9 (Version None)
Quarter: 2006Q2

REPORT INFORMATION
  Report Type: 
  Country: None (occurrence: None)
  Receive Date: 20060411
  Receipt Date: 20060411
  Transmission Date: 20061013
  Serious: Yes (Life-Threatening)
  Sender: FDA-Public Use
  Company Number: None

PATIENT
  Age: 82 Year
  Sex: Female
  Weight: 80.15 kg

DRUGS (12)
  1. COUMADIN [Suspect]
     Indication: ATRIAL FIBRILLATION
     Dosage: 3 MG   DAILY   PO
     Route: 048
     Dates: start: 20050101, end: 20060409
  2. ASPIRIN [Suspect]
     Indication: CARDIAC VALVE DISEASE
     Dosage: 81 MG  DAILY  PO
     Route: 048
     Dates: start: 20050101, end: 20060409
  3. ARICEPT [Concomitant]
  4. ALLEGRA [Concomitant]
  5. LISINOPRIL [Concomitant]
  6. LASIX [Concomitant]
  7. DIGOXIN [Concomitant]
  8. METOPROLOL TARTRATE [Concomitant]
  9. LIPITOR [Concomitant]
  10. DARVOCET [Concomitant]
  11. COMBIVENT [Concomitant]
  12. POTASSIUM CHLORIDE [Concomitant]

REACTIONS (4)
  - CARDIAC FAILURE [None]
  - DYSPNOEA [None]
  - RENAL FAILURE [None]
  - UPPER GASTROINTESTINAL HAEMORRHAGE [None]
